FAERS Safety Report 17018638 (Version 1)
Quarter: 2019Q4

REPORT INFORMATION
  Report Type: Spontaneous
  Country: US (occurrence: US)
  Receive Date: 20191111
  Receipt Date: 20191111
  Transmission Date: 20200122
  Serious: No
  Sender: FDA-Public Use
  Company Number: US-LUPIN PHARMACEUTICALS INC.-2019-00235

PATIENT
  Sex: Female

DRUGS (1)
  1. NORETHINDRONE TABLETS USP 0.35 MG [Suspect]
     Active Substance: NORETHINDRONE
     Indication: CONTRACEPTION
     Dosage: UNK
     Route: 065
     Dates: start: 20181126, end: 20181228

REACTIONS (2)
  - Product dose omission [Unknown]
  - Amenorrhoea [Unknown]
